FAERS Safety Report 14706290 (Version 1)
Quarter: 2018Q2

REPORT INFORMATION
  Report Type: Spontaneous
  Country: FR (occurrence: FR)
  Receive Date: 20180402
  Receipt Date: 20180402
  Transmission Date: 20180711
  Serious: Yes (Hospitalization)
  Sender: FDA-Public Use
  Company Number: FR-PFIZER INC-2018129301

PATIENT
  Age: 74 Year
  Sex: Male
  Weight: 64 kg

DRUGS (5)
  1. DOXORUBICINE ACCORD [Suspect]
     Active Substance: DOXORUBICIN
     Indication: DIFFUSE LARGE B-CELL LYMPHOMA STAGE III
     Dosage: 87 MG, CYCLIC (6 FULL-DOSE CYCLES, 2 HALF-DOSE CYCLES)
     Route: 042
     Dates: start: 20170613, end: 20171107
  2. VINCRISTINE SULFATE. [Suspect]
     Active Substance: VINCRISTINE SULFATE
     Indication: DIFFUSE LARGE B-CELL LYMPHOMA STAGE III
     Dosage: 2.44 MG, CYCLIC (C1-C6 FULL DOSES; C7 AND C8 1 MG)
     Route: 042
     Dates: start: 20170613, end: 20171107
  3. MABTHERA [Suspect]
     Active Substance: RITUXIMAB
     Indication: DIFFUSE LARGE B-CELL LYMPHOMA STAGE III
     Dosage: 1400 MG, CYCLIC (C1 TO C6 FULL DOSES, C7 AND C8 44 MG)
     Route: 041
     Dates: start: 20170613, end: 20171107
  4. CORTANCYL [Suspect]
     Active Substance: PREDNISONE
     Indication: DIFFUSE LARGE B-CELL LYMPHOMA STAGE III
     Dosage: 5 MG, 1X/DAY (J1 TO J5 OF EACH CYCLE)
     Route: 048
     Dates: start: 20170613, end: 201711
  5. ENDOXAN /00021101/ [Suspect]
     Active Substance: CYCLOPHOSPHAMIDE
     Indication: DIFFUSE LARGE B-CELL LYMPHOMA STAGE III
     Dosage: 1305 MG, CYCLIC (C1-C6 FULL DOSE; C7 AND C6 1040 MG)
     Route: 041
     Dates: start: 20170613, end: 20171107

REACTIONS (3)
  - Kaposi^s sarcoma [Not Recovered/Not Resolved]
  - Second primary malignancy [Not Recovered/Not Resolved]
  - Hepatitis E [Recovered/Resolved]

NARRATIVE: CASE EVENT DATE: 201711
